FAERS Safety Report 24797249 (Version 1)
Quarter: 2025Q1

REPORT INFORMATION
  Report Type: Spontaneous
  Country: US (occurrence: US)
  Receive Date: 20250101
  Receipt Date: 20250101
  Transmission Date: 20250409
  Serious: Yes (Hospitalization)
  Sender: JOHNSON AND JOHNSON
  Company Number: US-JNJFOC-20241258438

PATIENT
  Sex: Female

DRUGS (4)
  1. XARELTO [Suspect]
     Active Substance: RIVAROXABAN
     Indication: Atrial fibrillation
     Route: 048
  2. XARELTO [Suspect]
     Active Substance: RIVAROXABAN
     Indication: Cerebrovascular accident prophylaxis
  3. PLAVIX [Suspect]
     Active Substance: CLOPIDOGREL BISULFATE
     Indication: Atrial fibrillation
  4. INSULINA [INSULIN NOS] [Concomitant]

REACTIONS (3)
  - Pneumonia [Unknown]
  - Haematoma [Unknown]
  - Treatment noncompliance [Unknown]
